FAERS Safety Report 11193314 (Version 1)
Quarter: 2015Q2

REPORT INFORMATION
  Report Type: Spontaneous
  Country: US (occurrence: None)
  Receive Date: 20150615
  Receipt Date: 20150615
  Transmission Date: 20150821
  Serious: No
  Sender: FDA-Public Use
  Company Number: None

PATIENT
  Age: 75 Year
  Sex: Male

DRUGS (2)
  1. POLYETHYLENE ELECTULYTE SOLUTION [Suspect]
     Active Substance: POLYETHYLENE GLYCOLS
     Indication: CONSTIPATION
     Dates: start: 20150512, end: 20150515
  2. PROBIOTIC COMPLEX WITH ENZYME [Concomitant]

REACTIONS (2)
  - Drug effect decreased [None]
  - Weight decreased [None]

NARRATIVE: CASE EVENT DATE: 20150512
